FAERS Safety Report 7486833-6 (Version None)
Quarter: 2011Q2

REPORT INFORMATION
  Report Type: 
  Country: None (occurrence: None)
  Receive Date: 20110517
  Receipt Date: 20110509
  Transmission Date: 20111010
  Serious: Yes (Other)
  Sender: FDA-Public Use
  Company Number: IE-AMGEN-IRLSP2011018771

PATIENT
  Age: 47 Year
  Sex: Female
  Weight: 98.4 kg

DRUGS (2)
  1. ENBREL [Suspect]
     Indication: RHEUMATOID ARTHRITIS
     Dosage: 50 MG, WEEKLY
     Route: 058
     Dates: start: 20101130, end: 20110401
  2. ENBREL [Suspect]
     Dosage: 50 MG, WEEKLY
     Dates: start: 20110401

REACTIONS (2)
  - LOWER RESPIRATORY TRACT INFECTION [None]
  - HYPOAESTHESIA [None]
